FAERS Safety Report 7591881-1 (Version None)
Quarter: 2011Q3

REPORT INFORMATION
  Report Type: 
  Country: None (occurrence: None)
  Receive Date: 20110706
  Receipt Date: 20110617
  Transmission Date: 20111222
  Serious: Yes (Hospitalization, Other)
  Sender: FDA-Public Use
  Company Number: US-BAYER-2011-005524

PATIENT
  Age: 33 Year
  Sex: Female
  Weight: 81.633 kg

DRUGS (9)
  1. YAZ [Suspect]
     Indication: MENSTRUAL DISORDER
     Dosage: UNK
     Dates: start: 20070301, end: 20070801
  2. SUMATRIPTAN SUCCINATE [Concomitant]
  3. MUPIROCIN [Concomitant]
  4. SINGULAIR [Concomitant]
  5. LEVOTHYROXINE SODIUM [Concomitant]
  6. DOXYCYCLINE [Concomitant]
     Dosage: UNK
     Dates: start: 20091202
  7. HYDROCODONE BITARTRATE [Concomitant]
     Dosage: UNK
     Dates: start: 20090102
  8. XOPENEX [Concomitant]
  9. YAZ [Suspect]
     Indication: CONTRACEPTION
     Dosage: UNK
     Dates: start: 20070316, end: 20091201

REACTIONS (3)
  - CHOLECYSTITIS CHRONIC [None]
  - PAIN [None]
  - GALLBLADDER DISORDER [None]
